FAERS Safety Report 18951451 (Version 1)
Quarter: 2021Q1

REPORT INFORMATION
  Report Type: Report from Study
  Country: None (occurrence: US)
  Receive Date: 20210301
  Receipt Date: 20210301
  Transmission Date: 20210420
  Serious: Yes (Other)
  Sender: FDA-Public Use
  Company Number: US-ABBVIE-21K-163-3753740-00

PATIENT
  Age: 60 Year
  Sex: Female
  Weight: 81.72 kg

DRUGS (4)
  1. FOLIC ACID. [Concomitant]
     Active Substance: FOLIC ACID
     Indication: SUPPLEMENTATION THERAPY
  2. HUMIRA [Suspect]
     Active Substance: ADALIMUMAB
     Route: 058
     Dates: start: 202011
  3. METHOTREXATE. [Suspect]
     Active Substance: METHOTREXATE
     Indication: PSORIATIC ARTHROPATHY
     Route: 048
     Dates: start: 2018
  4. HUMIRA [Suspect]
     Active Substance: ADALIMUMAB
     Indication: PSORIATIC ARTHROPATHY
     Route: 058
     Dates: start: 20180126, end: 202011

REACTIONS (12)
  - Hernia [Unknown]
  - Migraine [Recovering/Resolving]
  - Hypertension [Recovering/Resolving]
  - Palpitations [Recovering/Resolving]
  - Nocturia [Recovering/Resolving]
  - Postoperative adhesion [Recovered/Resolved]
  - Abdominal pain [Recovered/Resolved]
  - Contusion [Recovered/Resolved]
  - Blood cholesterol increased [Recovering/Resolving]
  - Headache [Recovering/Resolving]
  - Adnexa uteri pain [Recovered/Resolved]
  - Feeling hot [Recovered/Resolved]

NARRATIVE: CASE EVENT DATE: 2018
